FAERS Safety Report 10182686 (Version 1)
Quarter: 2014Q2

REPORT INFORMATION
  Report Type: Spontaneous
  Country: US (occurrence: None)
  Receive Date: 20140519
  Receipt Date: 20140519
  Transmission Date: 20141212
  Serious: Yes (Hospitalization)
  Sender: FDA-Public Use
  Company Number: None

PATIENT
  Age: 29 Year
  Sex: Male
  Weight: 58.6 kg

DRUGS (3)
  1. CYTARABINE [Suspect]
  2. IDARUBICIN [Suspect]
  3. PRAVASTATIN SODIUM [Suspect]

REACTIONS (4)
  - Pyrexia [None]
  - Neutropenia [None]
  - Hypotension [None]
  - Computerised tomogram thorax abnormal [None]
